FAERS Safety Report 16805214 (Version 1)
Quarter: 2019Q4

REPORT INFORMATION
  Report Type: Spontaneous
  Country: US (occurrence: US)
  Receive Date: 20190913
  Receipt Date: 20190913
  Transmission Date: 20200122
  Serious: Yes (Hospitalization)
  Sender: FDA-Public Use
  Company Number: None

PATIENT
  Age: 41 Year
  Sex: Female

DRUGS (1)
  1. BOTOX [Suspect]
     Active Substance: ONABOTULINUMTOXINA
     Indication: MIGRAINE
     Dosage: ?          OTHER FREQUENCY:Q 90 DAYS;?
     Route: 030
     Dates: start: 20190103

REACTIONS (4)
  - Migraine [None]
  - Product dose omission [None]
  - Seizure [None]
  - Treatment noncompliance [None]

NARRATIVE: CASE EVENT DATE: 20190805
